FAERS Safety Report 8268422-9 (Version None)
Quarter: 2012Q2

REPORT INFORMATION
  Report Type: 
  Country: None (occurrence: None)
  Receive Date: 20120409
  Receipt Date: 20120402
  Transmission Date: 20120825
  Serious: Yes (Other)
  Sender: FDA-Public Use
  Company Number: US-ABBOTT-12P-163-0920668-00

PATIENT
  Sex: Female

DRUGS (8)
  1. ASPIRIN [Concomitant]
     Indication: PRODUCT USED FOR UNKNOWN INDICATION
  2. THYROID TAB [Concomitant]
     Indication: PRODUCT USED FOR UNKNOWN INDICATION
  3. LOPID [Concomitant]
     Indication: PRODUCT USED FOR UNKNOWN INDICATION
  4. HUMIRA [Suspect]
     Dates: start: 20120309
  5. RELAFEN [Concomitant]
     Indication: PRODUCT USED FOR UNKNOWN INDICATION
  6. HUMIRA [Suspect]
     Indication: PSORIATIC ARTHROPATHY
     Dates: start: 20101109
  7. TENORMIN [Concomitant]
     Indication: PRODUCT USED FOR UNKNOWN INDICATION
  8. TENEX [Concomitant]
     Indication: PRODUCT USED FOR UNKNOWN INDICATION
     Dosage: 1MG IN THE MORNING, 2MG AT DINNER

REACTIONS (8)
  - OOPHORECTOMY [None]
  - WRONG TECHNIQUE IN DRUG USAGE PROCESS [None]
  - INJECTION SITE PAIN [None]
  - BLOOD POTASSIUM INCREASED [None]
  - ARTHRITIS [None]
  - POSTMENOPAUSAL HAEMORRHAGE [None]
  - INJECTION SITE HAEMATOMA [None]
  - HYSTERECTOMY [None]
